FAERS Safety Report 6683627-6 (Version None)
Quarter: 2010Q2

REPORT INFORMATION
  Report Type: 
  Country: None (occurrence: None)
  Receive Date: 20100416
  Receipt Date: 20100406
  Transmission Date: 20101027
  Serious: Yes (Hospitalization)
  Sender: FDA-Public Use
  Company Number: FR-NAPPMUNDI-GBR-2010-0006306

PATIENT
  Sex: Female
  Weight: 38 kg

DRUGS (4)
  1. OXYCONTIN [Suspect]
     Indication: BONE PAIN
     Dosage: 20 MG, BID
     Route: 048
     Dates: start: 20090901
  2. OXYCODONE HCL [Suspect]
     Indication: BONE PAIN
     Dosage: 5 MG, PRN
     Route: 048
     Dates: start: 20090901, end: 20091026
  3. AXITINIB [Suspect]
     Indication: METASTATIC RENAL CELL CARCINOMA
     Dosage: 5 MG, BID
     Route: 048
     Dates: start: 20091012, end: 20091026
  4. ALDACTONE [Concomitant]
     Indication: OEDEMA PERIPHERAL
     Dosage: UNK
     Route: 048
     Dates: start: 20091012, end: 20091026

REACTIONS (1)
  - GENERAL PHYSICAL HEALTH DETERIORATION [None]
